FAERS Safety Report 9475713 (Version 2)
Quarter: 2013Q3

REPORT INFORMATION
  Report Type: Report from Study
  Country: NL (occurrence: NL)
  Receive Date: 20130826
  Receipt Date: 20130826
  Transmission Date: 20140515
  Serious: Yes (Other)
  Sender: FDA-Public Use
  Company Number: PHHY2012NL012478

PATIENT
  Age: 68 Year
  Sex: Male

DRUGS (8)
  1. ZOMETA [Suspect]
     Indication: PROSTATE CANCER METASTATIC
     Dosage: 4 MG/ 100 ML ONCE PER 28 DAYS
     Dates: start: 20120113
  2. ZOMETA [Suspect]
     Dosage: 4 MG/ 100 ML ONCE PER 28 DAYS
     Dates: start: 20120210
  3. ZOMETA [Suspect]
     Dosage: 4 MG/ 100 ML ONCE PER 28 DAYS
     Dates: start: 20120823
  4. ZOMETA [Suspect]
     Dosage: 4 MG/ 100 ML ONCE PER 28 DAYS
     Dates: start: 20120921
  5. ZOMETA [Suspect]
     Dosage: 4 MG/ 100 ML ONCE PER 28 DAYS
     Dates: start: 20121019
  6. ZOMETA [Suspect]
     Dosage: 4 MG/ 100 ML ONCE PER 4 WEEKS
     Dates: start: 20130113
  7. ZOMETA [Suspect]
     Dosage: 4 MG/ 100 ML ONCE PER 4 WEEKS
     Dates: start: 20130726
  8. ZOMETA [Suspect]
     Dosage: 4 MG/ 100 ML ONCE PER 4 WEEKS
     Dates: start: 20130821

REACTIONS (6)
  - Prostate cancer metastatic [Unknown]
  - Malignant neoplasm progression [Unknown]
  - Terminal state [Unknown]
  - Bone pain [Not Recovered/Not Resolved]
  - Malaise [Unknown]
  - Pain [Unknown]
